FAERS Safety Report 9234452 (Version 1)
Quarter: 2013Q1

REPORT INFORMATION
  Report Type: Spontaneous
  Country: US (occurrence: None)
  Receive Date: 20121031
  Receipt Date: 20121031
  Transmission Date: 20140127
  Serious: No
  Sender: FDA-Public Use
  Company Number: PHEH2012US012467

PATIENT
  Age: 25 Year
  Sex: Male

DRUGS (7)
  1. GILENYA (FTY) CAPSULE, 0.5MG [Suspect]
     Indication: MULTIPLE SCLEROSIS
     Route: 048
     Dates: start: 20110805
  2. CLONIDINE (CLONIDINE) [Concomitant]
  3. KEPPRA (LEVETIRACETAM) [Concomitant]
  4. DIAZEPAM (DIAZEPAM) [Concomitant]
  5. LABETALOL (LABETALOL) [Concomitant]
  6. ISOSORBIDE MONONITRATE (ISOSORBIDE MONONITRATE) [Concomitant]
  7. GUANFACINE (GUANFACINE) [Concomitant]

REACTIONS (3)
  - Fall [None]
  - Visual impairment [None]
  - Multiple sclerosis relapse [None]
